FAERS Safety Report 6840201-6 (Version None)
Quarter: 2010Q3

REPORT INFORMATION
  Report Type: 
  Country: None (occurrence: None)
  Receive Date: 20100713
  Receipt Date: 20100713
  Transmission Date: 20110219
  Serious: No
  Sender: FDA-Public Use
  Company Number: None

PATIENT
  Age: 51 Year
  Sex: Male
  Weight: 79.5 kg

DRUGS (3)
  1. CLINDAMYCIN HCL [Suspect]
     Indication: TOOTH INFECTION
     Dosage: 1TABLET 300MG 3X DAY ORAL
     Route: 048
     Dates: start: 20100624, end: 20100626
  2. PANTOPRAZOLE SOD DR [Concomitant]
  3. COQ10 [Concomitant]

REACTIONS (3)
  - ABDOMINAL DISTENSION [None]
  - DIARRHOEA [None]
  - DYSPEPSIA [None]
